FAERS Safety Report 19143177 (Version 2)
Quarter: 2021Q2

REPORT INFORMATION
  Report Type: Spontaneous
  Country: US (occurrence: US)
  Receive Date: 20210415
  Receipt Date: 20210604
  Transmission Date: 20210717
  Serious: No
  Sender: FDA-Public Use
  Company Number: US-BEH-2021130356

PATIENT
  Sex: Male
  Weight: 47.62 kg

DRUGS (2)
  1. HIZENTRA [Suspect]
     Active Substance: HUMAN IMMUNOGLOBULIN G
     Indication: HYPOGAMMAGLOBULINAEMIA
     Dosage: 8 GRAM, QW
     Route: 058
     Dates: start: 202012
  2. HIZENTRA [Suspect]
     Active Substance: HUMAN IMMUNOGLOBULIN G
     Dosage: 8 GRAM, WEEKLY
     Route: 058
     Dates: start: 202104

REACTIONS (2)
  - Weight fluctuation [Unknown]
  - Weight decreased [Unknown]

NARRATIVE: CASE EVENT DATE: 2021
